FAERS Safety Report 15965936 (Version 2)
Quarter: 2019Q1

REPORT INFORMATION
  Report Type: Spontaneous
  Country: US (occurrence: US)
  Receive Date: 20190215
  Receipt Date: 20190311
  Transmission Date: 20190418
  Serious: No
  Sender: FDA-Public Use
  Company Number: US-PFIZER INC-2019067634

PATIENT
  Age: 12 Year
  Sex: Male
  Weight: 99.79 kg

DRUGS (2)
  1. GENOTROPIN MQ [Suspect]
     Active Substance: SOMATROPIN
     Indication: PRADER-WILLI SYNDROME
     Dosage: 1.4 MG, 6 DAYS A WEEK
     Route: 058
     Dates: start: 20170701
  2. METORMIN [Concomitant]
     Active Substance: METFORMIN HYDROCHLORIDE
     Indication: GLUCOSE TOLERANCE IMPAIRED
     Dosage: 1500 MG (THREE 500 MG) DAILY
     Route: 048
     Dates: start: 2017

REACTIONS (7)
  - Hunger [Unknown]
  - Insulin-like growth factor increased [Unknown]
  - Blood cholesterol increased [Unknown]
  - Bone density increased [Unknown]
  - Weight increased [Unknown]
  - Low density lipoprotein decreased [Unknown]
  - Blood triglycerides increased [Unknown]
